FAERS Safety Report 8553896 (Version 2)
Quarter: 2013Q1

REPORT INFORMATION
  Report Type: Report from Study
  Country: US (occurrence: US)
  Receive Date: 20120509
  Receipt Date: 20130206
  Transmission Date: 20140127
  Serious: Yes (Hospitalization)
  Sender: FDA-Public Use
  Company Number: US-ROCHE-1066450

PATIENT
  Age: 44 Year
  Sex: Male
  Weight: 82.54 kg

DRUGS (4)
  1. PEG-INTERFERON ALFA 2A [Suspect]
     Indication: HEPATITIS C
     Route: 058
     Dates: start: 20110706
  2. RIBAVIRIN [Suspect]
     Indication: HEPATITIS C
     Route: 048
  3. NAPROSYN [Concomitant]
  4. ALISPORIVIR [Suspect]
     Indication: HEPATITIS C
     Route: 048
     Dates: start: 20110706

REACTIONS (2)
  - Influenza like illness [Recovered/Resolved]
  - Tachycardia [Recovered/Resolved]
